FAERS Safety Report 23983170 (Version 1)
Quarter: 2024Q2

REPORT INFORMATION
  Report Type: Spontaneous
  Country: US (occurrence: US)
  Receive Date: 20240617
  Receipt Date: 20240617
  Transmission Date: 20240716
  Serious: Yes (Death, Other)
  Sender: FDA-Public Use
  Company Number: US-DRL-USA-LIT/USA/24/0008427

PATIENT

DRUGS (3)
  1. CARMUSTINE [Suspect]
     Active Substance: CARMUSTINE
     Indication: Prophylaxis against graft versus host disease
  2. MELPHALAN [Suspect]
     Active Substance: MELPHALAN
     Indication: Prophylaxis against graft versus host disease
  3. FLUDARABINE [Suspect]
     Active Substance: FLUDARABINE PHOSPHATE
     Indication: Prophylaxis against graft versus host disease

REACTIONS (2)
  - Thrombotic microangiopathy [Fatal]
  - Drug ineffective for unapproved indication [Unknown]
